FAERS Safety Report 8344057-4 (Version None)
Quarter: 2012Q2

REPORT INFORMATION
  Report Type: 
  Country: None (occurrence: None)
  Receive Date: 20120508
  Receipt Date: 20101223
  Transmission Date: 20120825
  Serious: Yes (Hospitalization)
  Sender: FDA-Public Use
  Company Number: US-BAYER-201036826NA

PATIENT
  Age: 26 Year
  Sex: Female
  Weight: 49.887 kg

DRUGS (9)
  1. YASMIN [Suspect]
     Indication: MENSTRUAL CYCLE MANAGEMENT
     Dosage: UNK
     Dates: start: 20030101
  2. YASMIN [Suspect]
     Indication: DYSMENORRHOEA
     Dosage: UNK
     Route: 048
     Dates: start: 20080401, end: 20080701
  3. ACETAMINOPHEN [Concomitant]
     Dosage: 650 MG, UNK
     Route: 048
  4. DROSPIRENONE AND ETHINYL ESTRADIOL [Suspect]
     Indication: MENSTRUAL CYCLE MANAGEMENT
  5. IBUPROFEN [Concomitant]
     Indication: MUSCLE SPASMS
  6. IBUPROFEN [Concomitant]
     Indication: HEADACHE
     Dosage: TOOK OFTEN
     Dates: start: 19990101
  7. MORPHINE SULFATE [Concomitant]
     Dosage: 2 MG, UNK
     Route: 042
  8. ZOFRAN [Concomitant]
     Dosage: 4 MG, UNK
     Route: 042
  9. DROSPIRENONE AND ETHINYL ESTRADIOL [Suspect]
     Indication: DYSMENORRHOEA
     Dosage: UNK
     Route: 048
     Dates: start: 20080801, end: 20090401

REACTIONS (8)
  - EMOTIONAL DISTRESS [None]
  - DEPRESSION [None]
  - NERVOUSNESS [None]
  - INJURY [None]
  - CHEST PAIN [None]
  - GALLBLADDER DISORDER [None]
  - FEAR OF DEATH [None]
  - BILIARY DYSKINESIA [None]
